FAERS Safety Report 5161163-6 (Version None)
Quarter: 2006Q4

REPORT INFORMATION
  Report Type: 
  Country: None (occurrence: None)
  Receive Date: 20061130
  Receipt Date: 20060908
  Transmission Date: 20070319
  Serious: Yes (Other)
  Sender: FDA-Public Use
  Company Number: PHEH2006US11531

PATIENT
  Age: 72 Year
  Sex: Female

DRUGS (4)
  1. XELODA [Concomitant]
     Indication: COLON CANCER
     Dates: start: 20010501, end: 20030101
  2. XELODA [Concomitant]
     Dates: start: 20040105, end: 20040301
  3. OXALIPLATIN [Concomitant]
     Indication: COLON CANCER
     Dates: start: 20040101, end: 20040301
  4. ZOMETA [Suspect]
     Indication: METASTASIS
     Dosage: 4 MG MONTHLY
     Dates: start: 20030609, end: 20051001

REACTIONS (19)
  - ABSCESS DRAINAGE [None]
  - ABSCESS JAW [None]
  - BONE DISORDER [None]
  - COMPUTERISED TOMOGRAM ABNORMAL [None]
  - HYPOAESTHESIA [None]
  - IMPAIRED HEALING [None]
  - INFECTION [None]
  - ORAL SOFT TISSUE DISORDER [None]
  - OSTEOLYSIS [None]
  - OSTEOMYELITIS [None]
  - OSTEONECROSIS [None]
  - PAIN [None]
  - PRIMARY SEQUESTRUM [None]
  - RASH PUSTULAR [None]
  - SOFT TISSUE INFECTION [None]
  - SWELLING [None]
  - TOOTH EXTRACTION [None]
  - TOOTH FRACTURE [None]
  - WOUND TREATMENT [None]
